FAERS Safety Report 6698029-6 (Version None)
Quarter: 2010Q2

REPORT INFORMATION
  Report Type: 
  Country: None (occurrence: None)
  Receive Date: 20100427
  Receipt Date: 20100415
  Transmission Date: 20101027
  Serious: Yes (Death, Other)
  Sender: FDA-Public Use
  Company Number: DE-BAYER-201021897GPV

PATIENT
  Age: 25 Year
  Sex: Male
  Weight: 120 kg

DRUGS (4)
  1. REFLUDAN [Suspect]
     Indication: ANTICOAGULANT THERAPY
     Dosage: AS USED: 0.6 TO 1 MG/H
  2. HEPARIN [Concomitant]
     Indication: ANTICOAGULANT THERAPY
     Route: 065
  3. PROTAMINE SULFATE [Concomitant]
     Indication: HEPARIN NEUTRALISATION THERAPY
     Route: 065
  4. ACETYLSALICYLIC ACID [Concomitant]
     Indication: PLATELET AGGREGATION INHIBITION
     Route: 065

REACTIONS (3)
  - BRONCHOPULMONARY ASPERGILLOSIS [None]
  - DISSEMINATED INTRAVASCULAR COAGULATION [None]
  - SEPTIC SHOCK [None]
